FAERS Safety Report 6252057-3 (Version None)
Quarter: 2009Q2

REPORT INFORMATION
  Report Type: 
  Country: None (occurrence: None)
  Receive Date: 20090630
  Receipt Date: 20070122
  Transmission Date: 20091009
  Serious: Yes (Hospitalization)
  Sender: FDA-Public Use
  Company Number: US-ROCHE-638769

PATIENT
  Sex: Male

DRUGS (5)
  1. ENFUVIRTIDE [Suspect]
     Indication: HIV INFECTION
     Route: 065
     Dates: start: 20041229, end: 20070402
  2. EPIVIR [Concomitant]
     Dates: start: 20040504, end: 20070402
  3. SUSTIVA [Concomitant]
     Dates: start: 20040504, end: 20070402
  4. VIREAD [Concomitant]
     Dates: start: 20040504, end: 20070402
  5. BACTRIM [Concomitant]
     Dates: start: 20040504, end: 20070402

REACTIONS (2)
  - HIP FRACTURE [None]
  - LYMPHOMA [None]
